FAERS Safety Report 5490406-4 (Version None)
Quarter: 2007Q4

REPORT INFORMATION
  Report Type: 
  Country: None (occurrence: None)
  Receive Date: 20071019
  Receipt Date: 20071011
  Transmission Date: 20080405
  Serious: Yes (Other)
  Sender: FDA-Public Use
  Company Number: PHBS2007KR15076

PATIENT
  Sex: Female

DRUGS (2)
  1. DIOVAN [Suspect]
     Indication: HYPERTENSION
     Dosage: 80 MG/DAY
     Route: 048
  2. TENORMIN [Concomitant]
     Indication: HYPERTENSION

REACTIONS (2)
  - GINGIVAL HYPERPLASIA [None]
  - GINGIVAL OPERATION [None]
